FAERS Safety Report 6096597-9 (Version None)
Quarter: 2009Q1

REPORT INFORMATION
  Report Type: 
  Country: None (occurrence: None)
  Receive Date: 20090225
  Receipt Date: 20090225
  Transmission Date: 20090719
  Serious: No
  Sender: FDA-Public Use
  Company Number: None

PATIENT
  Sex: Male
  Weight: 90.7194 kg

DRUGS (1)
  1. OXYCODONE 10MG. ETHEX [Suspect]
     Indication: LIVER DISORDER
     Dosage: 10 MG. 1 EVERY 6 HR. MOUTH
     Route: 048
     Dates: start: 20081217, end: 20090217

REACTIONS (5)
  - DRUG INEFFECTIVE [None]
  - FEELING ABNORMAL [None]
  - HEADACHE [None]
  - MUSCLE SPASMS [None]
  - POOR QUALITY SLEEP [None]
